FAERS Safety Report 11536826 (Version 2)
Quarter: 2015Q3

REPORT INFORMATION
  Report Type: Spontaneous
  Country: US (occurrence: US)
  Receive Date: 20150922
  Receipt Date: 20150928
  Transmission Date: 20151125
  Serious: Yes (Other)
  Sender: FDA-Public Use
  Company Number: US-PFIZER INC-2015316029

PATIENT
  Age: 73 Year
  Sex: Female

DRUGS (1)
  1. SERTRALINE HCL [Suspect]
     Active Substance: SERTRALINE HYDROCHLORIDE
     Dosage: 10 MG, UNK

REACTIONS (6)
  - Gait disturbance [Unknown]
  - Hip fracture [Unknown]
  - Fall [Unknown]
  - Pain [Unknown]
  - Muscular weakness [Unknown]
  - Dyspnoea [Unknown]
